FAERS Safety Report 4586532-4 (Version None)
Quarter: 2005Q1

REPORT INFORMATION
  Report Type: 
  Country: None (occurrence: None)
  Receive Date: 20050218
  Receipt Date: 20040123
  Transmission Date: 20050727
  Serious: No
  Sender: FDA-Public Use
  Company Number: US-BRISTOL-MYERS SQUIBB COMPANY-12486064

PATIENT
  Sex: Female

DRUGS (2)
  1. PACLITAXEL [Suspect]
  2. ALOXI [Suspect]

REACTIONS (2)
  - BURNING SENSATION [None]
  - PRURITUS [None]
